FAERS Safety Report 9731550 (Version 1)
Quarter: 2013Q4

REPORT INFORMATION
  Report Type: Spontaneous
  Country: NL (occurrence: None)
  Receive Date: 20131203
  Receipt Date: 20131203
  Transmission Date: 20140711
  Serious: Yes (Other)
  Sender: FDA-Public Use
  Company Number: FK201305072

PATIENT
  Sex: Male

DRUGS (4)
  1. DOXYCYCLINE [Suspect]
     Indication: ROSACEA
     Route: 048
  2. ATORVASTATIN (ATORVASTATIN) [Concomitant]
  3. OMEPRAZOLE (OMEPRAZOLE) [Concomitant]
  4. METRONIDAZOLE (METRONIDAZOLE) [Concomitant]

REACTIONS (3)
  - Paraesthesia [None]
  - Paraesthesia [None]
  - Arthralgia [None]
